FAERS Safety Report 7214358-1 (Version None)
Quarter: 2011Q1

REPORT INFORMATION
  Report Type: 
  Country: None (occurrence: None)
  Receive Date: 20110107
  Receipt Date: 20101207
  Transmission Date: 20110831
  Serious: Yes (Other)
  Sender: FDA-Public Use
  Company Number: DE-B.I. PHARMACEUTICALS,INC./RIDGEFIELD-2010-DE-05616BY

PATIENT
  Sex: Female
  Weight: 84 kg

DRUGS (1)
  1. KINZALMONO [Suspect]
     Indication: HYPERTENSION
     Dosage: 40 MG
     Route: 048
     Dates: start: 20100602, end: 20100618

REACTIONS (3)
  - PETECHIAE [None]
  - JOINT SWELLING [None]
  - VASCULITIS [None]
